FAERS Safety Report 4964336-8 (Version None)
Quarter: 2006Q2

REPORT INFORMATION
  Report Type: 
  Country: None (occurrence: None)
  Receive Date: 20060406
  Receipt Date: 20060329
  Transmission Date: 20061013
  Serious: Yes (Other)
  Sender: FDA-Public Use
  Company Number: US-JNJFOC-20060307549

PATIENT

DRUGS (1)
  1. CLADRIBINE [Suspect]
     Indication: MULTIPLE SCLEROSIS

REACTIONS (1)
  - MYELODYSPLASTIC SYNDROME [None]
